FAERS Safety Report 16269690 (Version 1)
Quarter: 2019Q2

REPORT INFORMATION
  Report Type: Spontaneous
  Country: FR (occurrence: FR)
  Receive Date: 20190503
  Receipt Date: 20190503
  Transmission Date: 20190711
  Serious: Yes (Hospitalization)
  Sender: FDA-Public Use
  Company Number: FR-ROCHE-2311874

PATIENT
  Age: 26 Year
  Sex: Female
  Weight: 46 kg

DRUGS (1)
  1. LUCENTIS [Suspect]
     Active Substance: RANIBIZUMAB
     Indication: DIABETIC RETINOPATHY
     Dosage: RIGHT EYE INTRAOCULAR
     Route: 031

REACTIONS (1)
  - Renal infarct [Recovered/Resolved with Sequelae]

NARRATIVE: CASE EVENT DATE: 20190208
